FAERS Safety Report 5919655-5 (Version None)
Quarter: 2008Q4

REPORT INFORMATION
  Report Type: 
  Country: None (occurrence: None)
  Receive Date: 20081015
  Receipt Date: 20081006
  Transmission Date: 20090506
  Serious: Yes (Hospitalization)
  Sender: FDA-Public Use
  Company Number: FR-AVENTIS-200813533FR

PATIENT
  Age: 60 Year
  Sex: Female

DRUGS (5)
  1. ARAVA [Suspect]
     Indication: RHEUMATOID ARTHRITIS
     Route: 048
     Dates: start: 20060117, end: 20080810
  2. CORTANCYL [Suspect]
     Indication: RHEUMATOID ARTHRITIS
     Route: 048
  3. REMICADE [Concomitant]
     Indication: RHEUMATOID ARTHRITIS
     Route: 042
     Dates: start: 20061101, end: 20080618
  4. ACTONEL [Concomitant]
     Indication: RHEUMATOID ARTHRITIS
  5. CALCIUM D3                         /01483701/ [Concomitant]
     Indication: RHEUMATOID ARTHRITIS

REACTIONS (2)
  - HAEMORRHAGIC STROKE [None]
  - HYPERTENSION [None]
